FAERS Safety Report 8417052-4 (Version None)
Quarter: 2012Q2

REPORT INFORMATION
  Report Type: 
  Country: None (occurrence: None)
  Receive Date: 20120606
  Receipt Date: 20120530
  Transmission Date: 20120825
  Serious: Yes (Other)
  Sender: FDA-Public Use
  Company Number: US-PFIZER INC-2012130151

PATIENT
  Age: 74 Year
  Sex: Female

DRUGS (3)
  1. PRISTIQ [Suspect]
  2. BUTRANS [Suspect]
  3. DILAUDID [Suspect]

REACTIONS (1)
  - DELIRIUM [None]
